FAERS Safety Report 7684365-3 (Version None)
Quarter: 2011Q3

REPORT INFORMATION
  Report Type: 
  Country: None (occurrence: None)
  Receive Date: 20110816
  Receipt Date: 20110810
  Transmission Date: 20111222
  Serious: Yes (Death)
  Sender: FDA-Public Use
  Company Number: US-BIOGENIDEC-2011BI023723

PATIENT
  Age: 40 Year
  Sex: Female

DRUGS (2)
  1. TYSABRI [Suspect]
     Indication: MULTIPLE SCLEROSIS
     Route: 042
     Dates: start: 20070905, end: 20080703
  2. TYSABRI [Suspect]
     Route: 042
     Dates: start: 20081031, end: 20110610

REACTIONS (2)
  - CARDIAC ARREST [None]
  - DIABETES MELLITUS [None]
